FAERS Safety Report 10256713 (Version 1)
Quarter: 2014Q2

REPORT INFORMATION
  Report Type: Report from Study
  Country: GB (occurrence: GB)
  Receive Date: 20140624
  Receipt Date: 20140624
  Transmission Date: 20141212
  Serious: Yes (Hospitalization, Other)
  Sender: FDA-Public Use
  Company Number: GB-JNJFOC-20140202694

PATIENT
  Sex: Male
  Weight: 134 kg

DRUGS (7)
  1. RIVAROXABAN [Suspect]
     Indication: ATRIAL FIBRILLATION
     Route: 048
     Dates: start: 20130716, end: 20131207
  2. RIVAROXABAN [Suspect]
     Indication: CEREBROVASCULAR ACCIDENT PROPHYLAXIS
     Route: 048
     Dates: start: 20130716, end: 20131207
  3. IRBESARTAN [Concomitant]
     Route: 065
     Dates: start: 20131208
  4. DALTEPARIN [Concomitant]
     Route: 065
     Dates: start: 20131208, end: 20131219
  5. ATORVASTATIN [Concomitant]
     Route: 065
     Dates: start: 20131208
  6. CLOPIDOGREL [Concomitant]
     Route: 065
     Dates: start: 20131220, end: 20140120
  7. BENDROFLUMETHIAZIDE [Concomitant]
     Route: 065
     Dates: start: 20110101

REACTIONS (1)
  - Ischaemic stroke [Recovered/Resolved]
